FAERS Safety Report 9568739 (Version 1)
Quarter: 2013Q3

REPORT INFORMATION
  Report Type: Spontaneous
  Country: US (occurrence: US)
  Receive Date: 20130930
  Receipt Date: 20130930
  Transmission Date: 20140515
  Serious: No
  Sender: FDA-Public Use
  Company Number: US-AMGEN-USASP2013061074

PATIENT
  Age: 77 Year
  Sex: Female
  Weight: 55.33 kg

DRUGS (1)
  1. ENBREL [Suspect]
     Indication: RHEUMATOID ARTHRITIS
     Dosage: 50 MG, EVERY WEEK
     Route: 058
     Dates: start: 20121025

REACTIONS (1)
  - Injection site swelling [Recovered/Resolved]
